FAERS Safety Report 6235353-5 (Version None)
Quarter: 2009Q2

REPORT INFORMATION
  Report Type: 
  Country: None (occurrence: None)
  Receive Date: 20090615
  Receipt Date: 20090209
  Transmission Date: 20091009
  Serious: Yes (Hospitalization)
  Sender: FDA-Public Use
  Company Number: 8044127

PATIENT
  Age: 76 Year
  Sex: Male

DRUGS (8)
  1. KEPPRA [Suspect]
     Indication: PARTIAL SEIZURES
     Dosage: 1500 /D PO
     Route: 048
     Dates: start: 20081001, end: 20081203
  2. CARDIOASPIRINE [Concomitant]
  3. DEPAKINE CRONO /00228502/ [Concomitant]
  4. EMCONCOR /00802601/ [Concomitant]
  5. LIPITOR [Concomitant]
  6. LORMETAZEPAM [Concomitant]
  7. TEMESTA /00273201/ [Concomitant]
  8. DIAMICRON [Concomitant]

REACTIONS (3)
  - CUTANEOUS VASCULITIS [None]
  - LEUKOCYTOCLASTIC VASCULITIS [None]
  - PETECHIAE [None]
